FAERS Safety Report 25633005 (Version 1)
Quarter: 2025Q3

REPORT INFORMATION
  Report Type: Spontaneous
  Country: US (occurrence: US)
  Receive Date: 20250801
  Receipt Date: 20250801
  Transmission Date: 20251021
  Serious: No
  Sender: PFIZER
  Company Number: US-PFIZER INC-PV202500092486

PATIENT
  Age: 69 Year
  Sex: Female

DRUGS (2)
  1. LINEZOLID [Suspect]
     Active Substance: LINEZOLID
     Indication: Mycobacterium abscessus infection
  2. LINEZOLID [Suspect]
     Active Substance: LINEZOLID
     Indication: Skin infection

REACTIONS (1)
  - Drug intolerance [Unknown]
